FAERS Safety Report 20739102 (Version 1)
Quarter: 2022Q2

REPORT INFORMATION
  Report Type: Spontaneous
  Country: US (occurrence: US)
  Receive Date: 20220422
  Receipt Date: 20220422
  Transmission Date: 20220721
  Serious: No
  Sender: FDA-Public Use
  Company Number: US-NOVARTISTESTPH-NVSC2021US179604

PATIENT

DRUGS (1)
  1. NETSPOT [Suspect]
     Active Substance: DOTATATE GALLIUM GA-68
     Indication: Product used for unknown indication
     Dosage: 40 MG, ONCE/SINGLE, (INTRAVENOUS - INTO BLOODSTREAM VIA VEIN)
     Route: 042

REACTIONS (1)
  - Scan gallium abnormal [Unknown]
